FAERS Safety Report 8415040-5 (Version None)
Quarter: 2012Q2

REPORT INFORMATION
  Report Type: 
  Country: None (occurrence: None)
  Receive Date: 20120606
  Receipt Date: 20120525
  Transmission Date: 20120825
  Serious: Yes (Hospitalization)
  Sender: FDA-Public Use
  Company Number: JP-JNJFOC-20120600211

PATIENT
  Sex: Female

DRUGS (4)
  1. METHOTREXATE [Concomitant]
     Indication: RHEUMATOID ARTHRITIS
     Dosage: 6MG/W
     Route: 048
     Dates: start: 20120206
  2. REMICADE [Suspect]
     Route: 042
     Dates: start: 20110721
  3. REMICADE [Suspect]
     Route: 042
     Dates: start: 20110816
  4. REMICADE [Suspect]
     Indication: RHEUMATOID ARTHRITIS
     Route: 042
     Dates: start: 20111206

REACTIONS (1)
  - MYCOBACTERIAL INFECTION [None]
